FAERS Safety Report 7717379-5 (Version None)
Quarter: 2011Q3

REPORT INFORMATION
  Report Type: 
  Country: None (occurrence: None)
  Receive Date: 20110830
  Receipt Date: 20110818
  Transmission Date: 20111222
  Serious: Yes (Hospitalization)
  Sender: FDA-Public Use
  Company Number: BE-JNJFOC-20100805890

PATIENT
  Sex: Female

DRUGS (12)
  1. GOLIMUMAB [Suspect]
     Indication: RHEUMATOID ARTHRITIS
     Route: 058
     Dates: start: 20100420, end: 20100817
  2. FURADANTIN [Concomitant]
     Indication: URINARY TRACT INFECTION
     Dates: start: 20100820
  3. BISOPROLOL FUMARATE [Concomitant]
     Indication: HYPERTENSION
     Dates: start: 20030505
  4. PANTOPRAZOLE [Concomitant]
     Indication: GASTRITIS PROPHYLAXIS
     Dates: start: 20100301
  5. CARDIO ASPIRINE [Concomitant]
     Indication: CEREBROVASCULAR ACCIDENT
     Dates: start: 19970101
  6. ZOPICLONE [Concomitant]
     Indication: INSOMNIA
     Dates: start: 19970101
  7. METHOTREXATE [Suspect]
     Indication: RHEUMATOID ARTHRITIS
     Route: 058
     Dates: start: 20090519, end: 20100819
  8. TRAMADOL HCL [Concomitant]
     Indication: RHEUMATOID ARTHRITIS
     Dates: start: 20090519
  9. FOLIC ACID [Concomitant]
     Indication: RHEUMATOID ARTHRITIS
     Dates: start: 20090519, end: 20100819
  10. CALCIUM AND D3 [Concomitant]
     Indication: RHEUMATOID ARTHRITIS
     Dates: start: 20090519
  11. ACETAMINOPHEN [Concomitant]
     Indication: PYREXIA
     Dates: start: 20100821, end: 20100822
  12. LEFLUNOMIDE [Concomitant]
     Indication: RHEUMATOID ARTHRITIS
     Dates: start: 20090812

REACTIONS (2)
  - GENERAL PHYSICAL HEALTH DETERIORATION [None]
  - ALCOHOL POISONING [None]
